FAERS Safety Report 4534439-0 (Version None)
Quarter: 2004Q4

REPORT INFORMATION
  Report Type: 
  Country: None (occurrence: None)
  Receive Date: 20041222
  Receipt Date: 20041215
  Transmission Date: 20050328
  Serious: Yes (Life-Threatening, Hospitalization)
  Sender: FDA-Public Use
  Company Number: 200414753FR

PATIENT
  Age: 72 Year
  Sex: Female
  Weight: 34 kg

DRUGS (6)
  1. FLAGYL [Suspect]
     Route: 042
     Dates: start: 20040928
  2. HEPARIN [Suspect]
     Route: 042
     Dates: start: 20040928, end: 20041002
  3. FENTANYL [Suspect]
     Route: 042
     Dates: start: 20041001, end: 20041005
  4. AMIKLIN [Suspect]
     Route: 042
     Dates: start: 20041001, end: 20041005
  5. HYPNOVEL [Suspect]
     Route: 042
     Dates: start: 20041001, end: 20041005
  6. DYNASTAT [Concomitant]
     Route: 042
     Dates: start: 20040928

REACTIONS (5)
  - PLATELET COUNT INCREASED [None]
  - POST PROCEDURAL COMPLICATION [None]
  - SEPTIC SHOCK [None]
  - SURGICAL PROCEDURE REPEATED [None]
  - THROMBOCYTOPENIA [None]
